FAERS Safety Report 9152598 (Version 1)
Quarter: 2013Q1

REPORT INFORMATION
  Report Type: Spontaneous
  Country: US (occurrence: US)
  Receive Date: 20130308
  Receipt Date: 20130308
  Transmission Date: 20140127
  Serious: Yes (Other)
  Sender: FDA-Public Use
  Company Number: US-TEVA-390384USA

PATIENT
  Sex: Female

DRUGS (2)
  1. BUDESONIDE [Suspect]
  2. IPRATROPIUM BROMIDE [Suspect]

REACTIONS (4)
  - Convulsion [Unknown]
  - Dyskinesia [Unknown]
  - Tremor [Recovered/Resolved]
  - Drug prescribing error [Unknown]
